FAERS Safety Report 4530965-9 (Version None)
Quarter: 2004Q4

REPORT INFORMATION
  Report Type: 
  Country: None (occurrence: None)
  Receive Date: 20041217
  Receipt Date: 20041209
  Transmission Date: 20050328
  Serious: Yes (Hospitalization, Disabling, Other)
  Sender: FDA-Public Use
  Company Number: SE-MERCK-0412SWE00014

PATIENT
  Age: 63 Year
  Sex: Female

DRUGS (7)
  1. VIOXX [Suspect]
     Indication: WHIPLASH INJURY
     Route: 048
     Dates: start: 20010301, end: 20030601
  2. VIOXX [Suspect]
     Indication: NECK PAIN
     Route: 048
     Dates: start: 20010301, end: 20030601
  3. ATENOLOL [Concomitant]
     Route: 048
     Dates: start: 20020101
  4. HYDROCHLOROTHIAZIDE [Concomitant]
     Route: 048
     Dates: start: 20020101
  5. LOSARTAN POTASSIUM [Concomitant]
     Route: 048
     Dates: start: 20020101
  6. ACETAMINOPHEN [Concomitant]
     Route: 065
  7. ESOMEPRAZOLE MAGNESIUM [Concomitant]
     Route: 048

REACTIONS (8)
  - ANGINA PECTORIS [None]
  - CORONARY ARTERY DISEASE [None]
  - CORONARY ARTERY INSUFFICIENCY [None]
  - HAEMORRHAGIC DIATHESIS [None]
  - HYPERCHOLESTEROLAEMIA [None]
  - HYPERTENSION [None]
  - MYOCARDIAL INFARCTION [None]
  - MYOCARDIAL ISCHAEMIA [None]
